FAERS Safety Report 6276814-2 (Version None)
Quarter: 2009Q3

REPORT INFORMATION
  Report Type: 
  Country: None (occurrence: None)
  Receive Date: 20090722
  Receipt Date: 20080905
  Transmission Date: 20100115
  Serious: No
  Sender: FDA-Public Use
  Company Number: US-BRISTOL-MYERS SQUIBB COMPANY-14325575

PATIENT
  Age: 73 Year
  Sex: Female
  Weight: 82 kg

DRUGS (2)
  1. COUMADIN [Suspect]
     Indication: CARDIAC OPERATION
     Dosage: 10MG DAILY ON MONDAY AND FRIDAY,8MG DAILY ON THE OTHER DAYS.
  2. WARFARIN SODIUM [Suspect]

REACTIONS (3)
  - CYANOSIS [None]
  - NEUROPATHY PERIPHERAL [None]
  - SWELLING [None]
